FAERS Safety Report 6246160-1 (Version None)
Quarter: 2009Q2

REPORT INFORMATION
  Report Type: 
  Country: None (occurrence: None)
  Receive Date: 20090626
  Receipt Date: 20090514
  Transmission Date: 20091009
  Serious: No
  Sender: FDA-Public Use
  Company Number: A0785378A

PATIENT
  Sex: Female

DRUGS (1)
  1. SUMATRIPTAN SUCCINATE [Suspect]
     Indication: MIGRAINE
     Dosage: 1TAB AS REQUIRED
     Route: 048
     Dates: start: 20090501

REACTIONS (6)
  - ANXIETY [None]
  - CHEST PAIN [None]
  - DYSPNOEA [None]
  - MALAISE [None]
  - PYREXIA [None]
  - VOMITING [None]
